FAERS Safety Report 10784559 (Version 1)
Quarter: 2015Q1

REPORT INFORMATION
  Report Type: Spontaneous
  Country: US (occurrence: None)
  Receive Date: 20150209
  Receipt Date: 20150209
  Transmission Date: 20150721
  Serious: Yes (Disabling)
  Sender: FDA-Public Use
  Company Number: None

PATIENT
  Age: 68 Year
  Sex: Female
  Weight: 63.05 kg

DRUGS (1)
  1. VITAMIN B12 [Suspect]
     Active Substance: CYANOCOBALAMIN
     Indication: VITAMIN B12 DECREASED
     Dosage: 1 PILL
     Dates: start: 20130517, end: 20140106

REACTIONS (6)
  - Drug level increased [None]
  - Palpitations [None]
  - Anxiety [None]
  - Arrhythmia [None]
  - Insomnia [None]
  - Cardiac disorder [None]

NARRATIVE: CASE EVENT DATE: 20140104
